FAERS Safety Report 4339776-0 (Version None)
Quarter: 2004Q2

REPORT INFORMATION
  Report Type: 
  Country: None (occurrence: None)
  Receive Date: 20040414
  Receipt Date: 20040414
  Transmission Date: 20050107
  Serious: No
  Sender: FDA-Public Use
  Company Number: None

PATIENT
  Sex: Female
  Weight: 68.0396 kg

DRUGS (2)
  1. PAXIL CR [Suspect]
     Indication: DEPRESSION
     Dosage: 50 MG DAILY ORAL
     Route: 048
     Dates: start: 20031101, end: 20040416
  2. PAXIL CR [Suspect]
     Indication: PREMENSTRUAL SYNDROME
     Dosage: 50 MG DAILY ORAL
     Route: 048
     Dates: start: 20031101, end: 20040416

REACTIONS (7)
  - ABNORMAL DREAMS [None]
  - ALCOHOL POISONING [None]
  - DEPRESSION [None]
  - FEELING ABNORMAL [None]
  - HYPERSOMNIA [None]
  - MEMORY IMPAIRMENT [None]
  - THINKING ABNORMAL [None]
